FAERS Safety Report 11095896 (Version 1)
Quarter: 2015Q2

REPORT INFORMATION
  Report Type: Spontaneous
  Country: US (occurrence: US)
  Receive Date: 20150507
  Receipt Date: 20150507
  Transmission Date: 20150821
  Serious: Yes (Other)
  Sender: FDA-Public Use
  Company Number: US-ASTRAZENECA-2015SE41490

PATIENT
  Age: 76 Year
  Sex: Female
  Weight: 61.2 kg

DRUGS (2)
  1. PULMICORT FLEXHALER [Suspect]
     Active Substance: BUDESONIDE
     Indication: EMPHYSEMA
     Dosage: 180 UG ONE PUFF TWICE A DAY
     Route: 055
  2. PULMICORT FLEXHALER [Suspect]
     Active Substance: BUDESONIDE
     Indication: ASTHMA
     Dosage: 180 UG ONE PUFF TWICE A DAY
     Route: 055

REACTIONS (4)
  - Nervousness [Unknown]
  - Lung neoplasm malignant [Unknown]
  - Intentional product misuse [Unknown]
  - Dyspnoea [Unknown]

NARRATIVE: CASE EVENT DATE: 2012
